FAERS Safety Report 5735715-6 (Version None)
Quarter: 2008Q2

REPORT INFORMATION
  Report Type: 
  Country: None (occurrence: None)
  Receive Date: 20080513
  Receipt Date: 20080501
  Transmission Date: 20081010
  Serious: Yes (Other)
  Sender: FDA-Public Use
  Company Number: GB-RANBAXY-2008RR-14906

PATIENT

DRUGS (4)
  1. FLUOXETINE [Suspect]
     Indication: ANXIETY
     Dosage: 20 MG, UNK
     Dates: start: 20080301, end: 20080403
  2. FLUOXETINE [Suspect]
     Indication: DEPRESSION
     Dosage: 40 MG, UNK
     Dates: start: 20070701
  3. FLUOXETINE [Suspect]
     Dosage: 60 MG, UNK
     Dates: start: 20070920
  4. MIRTAZAPINE [Concomitant]
     Dosage: UNK
     Dates: start: 20071101

REACTIONS (2)
  - BRONCHITIS [None]
  - DYSPNOEA [None]
